FAERS Safety Report 8829172 (Version 2)
Quarter: 2013Q2

REPORT INFORMATION
  Report Type: Spontaneous
  Country: US (occurrence: US)
  Receive Date: 20121009
  Receipt Date: 20130412
  Transmission Date: 20140414
  Serious: Yes (Hospitalization)
  Sender: FDA-Public Use
  Company Number: US-PAR PHARMACEUTICAL, INC-2012SCPR004628

PATIENT
  Sex: 0

DRUGS (5)
  1. PROPAFENONE HCL ER [Suspect]
     Indication: CARDIAC FIBRILLATION
     Dosage: ONE CAPSULE TWICE A DAY
     Route: 048
     Dates: start: 201105
  2. PROPAFENONE HCL ER [Suspect]
     Indication: CARDIAC FIBRILLATION
     Dosage: 1 DF, BID
     Route: 048
  3. AMLODIPINE [Concomitant]
     Indication: PRODUCT USED FOR UNKNOWN INDICATION
     Dosage: UNK, UNKNOWN
     Route: 065
  4. OMEPRAZOLE [Concomitant]
     Indication: PRODUCT USED FOR UNKNOWN INDICATION
     Dosage: UNK, UNKNOWN
     Route: 065
  5. ASPIRIN [Concomitant]
     Indication: PRODUCT USED FOR UNKNOWN INDICATION
     Dosage: UNK, UNKNOWN
     Route: 065

REACTIONS (4)
  - Atrial fibrillation [Unknown]
  - Condition aggravated [Unknown]
  - Drug ineffective [Unknown]
  - Product quality issue [Unknown]
